FAERS Safety Report 9202629 (Version 2)
Quarter: 2013Q4

REPORT INFORMATION
  Report Type: Spontaneous
  Country: US (occurrence: US)
  Receive Date: 20130401
  Receipt Date: 20131202
  Transmission Date: 20140711
  Serious: Yes (Other)
  Sender: FDA-Public Use
  Company Number: US-BAYER-2013-039156

PATIENT
  Age: 18 Year
  Sex: Female

DRUGS (11)
  1. YAZ [Suspect]
  2. YASMIN [Suspect]
  3. OCELLA [Suspect]
  4. TORADOL [Concomitant]
     Dosage: 30 MG, UNK
     Route: 042
  5. COMPAZINE [Concomitant]
     Dosage: 5 MG, UNK
     Route: 042
  6. MORPHINE [Concomitant]
     Dosage: 5 MG, UNK
     Route: 042
  7. NAPROSYN [Concomitant]
     Dosage: 500 MG, BID-TID
  8. VICODIN [Concomitant]
     Dosage: 1-2 Q 4 HOURS
  9. CIPRO [Concomitant]
     Dosage: 500 AS WRITTEN  BID FOR 10 DAYS
  10. NITROFURANTOIN [Concomitant]
     Dosage: 100 MG, DAILY
     Route: 048
  11. NITROBID [NITROFURANTOIN] [Concomitant]

REACTIONS (5)
  - Gallbladder injury [None]
  - Injury [None]
  - Pain [None]
  - Pain [None]
  - Cholecystitis [None]
